FAERS Safety Report 4947043-7 (Version None)
Quarter: 2006Q1

REPORT INFORMATION
  Report Type: 
  Country: None (occurrence: None)
  Receive Date: 20060313
  Receipt Date: 20060224
  Transmission Date: 20060701
  Serious: Yes (Hospitalization)
  Sender: FDA-Public Use
  Company Number: DSA_27571_2005

PATIENT
  Age: 83 Year
  Sex: Female
  Weight: 61.2356 kg

DRUGS (8)
  1. DILTIAZEM [Suspect]
     Dosage: 180 MG Q DAY
  2. REQUIP [Concomitant]
  3. LABETALOL HCL [Concomitant]
  4. PLAVIX [Concomitant]
  5. ZOLOFT [Concomitant]
  6. ASPIRIN [Concomitant]
  7. HYZAAR [Concomitant]
  8. CARBIDOPA [Concomitant]

REACTIONS (7)
  - CARDIAC ARREST [None]
  - FEMUR FRACTURE [None]
  - HIP FRACTURE [None]
  - OSTEOPOROSIS [None]
  - PNEUMONIA [None]
  - ROAD TRAFFIC ACCIDENT [None]
  - THROMBOSIS [None]
